FAERS Safety Report 8759815 (Version 2)
Quarter: 2015Q3

REPORT INFORMATION
  Report Type: Report from Study
  Country: US (occurrence: US)
  Receive Date: 20120905
  Receipt Date: 20150706
  Transmission Date: 20151125
  Serious: Yes (Death, Hospitalization, Other)
  Sender: FDA-Public Use
  Company Number: US-ROCHE-1104158

PATIENT
  Sex: Female
  Weight: 57 kg

DRUGS (18)
  1. SPIRONOLACTONE. [Concomitant]
     Active Substance: SPIRONOLACTONE
     Route: 065
  2. AVASTIN [Suspect]
     Active Substance: BEVACIZUMAB
     Indication: PANCREATIC CARCINOMA
     Route: 065
     Dates: start: 20050503
  3. VANCOMYCIN [Concomitant]
     Active Substance: VANCOMYCIN
     Route: 042
  4. FENTANYL. [Concomitant]
     Active Substance: FENTANYL
     Dosage: 100MCG PER HOUR Q.72 HOURS
     Route: 065
  5. GEMZAR [Concomitant]
     Active Substance: GEMCITABINE HYDROCHLORIDE
     Dosage: 1000 MG/M2 OVER 100 MINUTES ON DAY 1
     Route: 065
     Dates: start: 20050323, end: 20050518
  6. TAXOTERE [Concomitant]
     Active Substance: DOCETAXEL
     Route: 065
     Dates: start: 20050323, end: 20050518
  7. ARANESP [Concomitant]
     Active Substance: DARBEPOETIN ALFA
  8. OXYCODONE [Concomitant]
     Active Substance: OXYCODONE
     Route: 065
  9. VICODIN [Concomitant]
     Active Substance: ACETAMINOPHEN\HYDROCODONE BITARTRATE
     Route: 065
  10. ATIVAN [Concomitant]
     Active Substance: LORAZEPAM
  11. XELODA [Suspect]
     Active Substance: CAPECITABINE
     Indication: PANCREATIC CARCINOMA
     Route: 065
     Dates: start: 20050323, end: 20050518
  12. ZELNORM [Concomitant]
     Active Substance: TEGASEROD MALEATE
  13. GEMZAR [Concomitant]
     Active Substance: GEMCITABINE HYDROCHLORIDE
     Route: 065
     Dates: start: 200502
  14. ERTAPENEM [Concomitant]
     Active Substance: ERTAPENEM
     Route: 042
  15. TARCEVA [Suspect]
     Active Substance: ERLOTINIB HYDROCHLORIDE
     Indication: PANCREATIC CARCINOMA
     Route: 065
     Dates: start: 20050503
  16. OXALIPLATIN. [Concomitant]
     Active Substance: OXALIPLATIN
     Dosage: 100 MG/M2 OVER 2 HOURS ON DAY 2
     Route: 065
     Dates: start: 200502
  17. DURAGESIC [Concomitant]
     Active Substance: FENTANYL
     Dosage: 200MCG Q.3 DAYS
     Route: 065
  18. LASIX [Concomitant]
     Active Substance: FUROSEMIDE
     Route: 065

REACTIONS (17)
  - Sepsis [Unknown]
  - Vomiting [Unknown]
  - Off label use [Unknown]
  - Pain [Unknown]
  - Electrolyte imbalance [Unknown]
  - Altered state of consciousness [Unknown]
  - Abdominal distension [Unknown]
  - Respiratory distress [Unknown]
  - Constipation [Unknown]
  - Nausea [Unknown]
  - Pleural effusion [Unknown]
  - Hypoalbuminaemia [Unknown]
  - Liver abscess [Unknown]
  - Dyspnoea [Unknown]
  - Hypoxia [Unknown]
  - Pyrexia [Unknown]
  - Death [Fatal]
